FAERS Safety Report 17515576 (Version 1)
Quarter: 2020Q1

REPORT INFORMATION
  Report Type: Report from Study
  Country: BR (occurrence: BR)
  Receive Date: 20200309
  Receipt Date: 20200309
  Transmission Date: 20200409
  Serious: Yes (Other)
  Sender: FDA-Public Use
  Company Number: BR-JNJFOC-20200307884

PATIENT
  Sex: Female
  Weight: 95 kg

DRUGS (1)
  1. REMICADE [Suspect]
     Active Substance: INFLIXIMAB
     Indication: ANKYLOSING SPONDYLITIS
     Dosage: 5 VIALS, WEEK 0, 2, AND 3; AFTER EVERY 8 WEEKS.
     Route: 042

REACTIONS (8)
  - Infusion related reaction [Recovered/Resolved]
  - Off label use [Unknown]
  - Skin disorder [Recovered/Resolved]
  - Product use issue [Unknown]
  - Hypersensitivity [Unknown]
  - Headache [Unknown]
  - Dyspnoea [Recovered/Resolved]
  - Loss of consciousness [Recovered/Resolved]
